FAERS Safety Report 7689620-9 (Version None)
Quarter: 2011Q3

REPORT INFORMATION
  Report Type: 
  Country: None (occurrence: None)
  Receive Date: 20110817
  Receipt Date: 20110808
  Transmission Date: 20111222
  Serious: Yes (Hospitalization, Other)
  Sender: FDA-Public Use
  Company Number: US-BAYER-2011-021760

PATIENT
  Age: 39 Year
  Sex: Female
  Weight: 70.295 kg

DRUGS (2)
  1. YAZ [Suspect]
     Indication: PRODUCT USED FOR UNKNOWN INDICATION
     Dosage: UNK
     Dates: start: 20090601, end: 20100101
  2. GARLIC TABLETS [Concomitant]
     Dosage: UNK UNK, QD
     Dates: start: 20091101

REACTIONS (3)
  - CHOLECYSTITIS [None]
  - CHOLECYSTECTOMY [None]
  - INJURY [None]
